FAERS Safety Report 4982197-8 (Version None)
Quarter: 2006Q2

REPORT INFORMATION
  Report Type: 
  Country: None (occurrence: None)
  Receive Date: 20060424
  Receipt Date: 20060424
  Transmission Date: 20061013
  Serious: Yes (Disabling)
  Sender: FDA-Public Use
  Company Number: None

PATIENT
  Age: 48 Year
  Sex: Female
  Weight: 82.1011 kg

DRUGS (1)
  1. BACLOFEN [Suspect]
     Indication: MUSCLE SPASMS
     Dosage: 5 MG  EVERY 8 HOURS  PO
     Route: 048
     Dates: start: 20060130, end: 20060202

REACTIONS (1)
  - LIVER FUNCTION TEST ABNORMAL [None]
